FAERS Safety Report 20854495 (Version 2)
Quarter: 2022Q2

REPORT INFORMATION
  Report Type: Report from Study
  Country: NL (occurrence: NL)
  Receive Date: 20220520
  Receipt Date: 20220615
  Transmission Date: 20220721
  Serious: Yes (Other)
  Sender: FDA-Public Use
  Company Number: NL-AMGEN-NLDSL2022083547

PATIENT
  Age: 74 Year
  Sex: Female

DRUGS (19)
  1. XGEVA [Suspect]
     Active Substance: DENOSUMAB
     Indication: Prophylaxis
     Dosage: 120 MILLIGRAM, Q4WK (120MG/1,7ML)
     Route: 058
  2. CALCIUM CARBONATE\CHOLECALCIFEROL [Concomitant]
     Active Substance: CALCIUM CARBONATE\CHOLECALCIFEROL
     Dosage: 1,25G/800IE (500MG CA) , QD
  3. CAPECITABINE [Concomitant]
     Active Substance: CAPECITABINE
     Dosage: 150 MILLIGRAM, BID
  4. CAPECITABINE [Concomitant]
     Active Substance: CAPECITABINE
     Dosage: 500 MILLIGRAM, 2D2T
  5. COSMETICS [Concomitant]
     Active Substance: COSMETICS
     Dosage: 10 PERCENT, 2D-OI
  6. COSMETICS [Concomitant]
     Active Substance: COSMETICS
     Dosage: 10 PERCENT, 2D-OI
  7. FENTANYL [Concomitant]
     Active Substance: FENTANYL
     Dosage: 12UG/HR (SANDOZ/1A PHARMA) 1PL PER 3 DAYS
  8. FENTANYL [Concomitant]
     Active Substance: FENTANYL
     Dosage: 25UG/UUR (GENERIC+DUROGESIC) 1PL PER 3 DAYS
  9. LIDOCAINE [Concomitant]
     Active Substance: LIDOCAINE
     Dosage: 30MG/G 2D-OI
  10. POLYETHYLENE GLYCOLS [Concomitant]
     Active Substance: POLYETHYLENE GLYCOLS
     Dosage: UNK UNK, QD
  11. METOPROLOL SUCCINATE [Concomitant]
     Active Substance: METOPROLOL SUCCINATE
     Dosage: 50 MILLIGRAM, QD
  12. NADROPARIN [Concomitant]
     Active Substance: NADROPARIN
     Dosage: WWSP 5700IE=0,6ML (9500IE/ML) 2D1INJ
  13. NAPROXEN [Concomitant]
     Active Substance: NAPROXEN
     Dosage: 250 MILLIGRAM, 2-3D1T
  14. NITROFURANTOIN [Concomitant]
     Active Substance: NITROFURANTOIN
     Dosage: 100 MILLIGRAM, 2D1C
  15. OMEPRAZOLE [Concomitant]
     Active Substance: OMEPRAZOLE
     Dosage: 20 MILLIGRAM, QD
  16. OMEPRAZOLE [Concomitant]
     Active Substance: OMEPRAZOLE
     Dosage: 40 MILLIGRAM, 2D1C
  17. OXYCODONE [Concomitant]
     Active Substance: OXYCODONE
     Dosage: 5 MILLIGRAM, 1-2D1T WHEN NEEDED
  18. DORZOLAMIDE\TIMOLOL [Concomitant]
     Active Substance: DORZOLAMIDE\TIMOLOL
     Dosage: 5/20MG/ML M 0,3ML Z BENZ 2D1DR IN EACH EYE.
  19. DIGOXIN [Concomitant]
     Active Substance: DIGOXIN
     Dosage: 0.125 MILLIGRAM, QD

REACTIONS (2)
  - Urinary retention [Not Recovered/Not Resolved]
  - Back pain [Not Recovered/Not Resolved]

NARRATIVE: CASE EVENT DATE: 20220501
